FAERS Safety Report 8402642-5 (Version None)
Quarter: 2012Q2

REPORT INFORMATION
  Report Type: 
  Country: None (occurrence: None)
  Receive Date: 20120601
  Receipt Date: 20110831
  Transmission Date: 20120825
  Serious: Yes (Other)
  Sender: FDA-Public Use
  Company Number: DE-CELGENEUS-062-20785-12050479

PATIENT

DRUGS (8)
  1. DEXAMETHASONE [Concomitant]
     Indication: MULTIPLE MYELOMA
     Route: 065
  2. MELPHALAN HYDROCHLORIDE [Concomitant]
     Indication: MULTIPLE MYELOMA
     Route: 065
  3. BORTEZOMIB [Concomitant]
     Indication: MULTIPLE MYELOMA
     Route: 065
  4. THALIDOMIDE [Suspect]
     Indication: MULTIPLE MYELOMA
     Dosage: 200MG-50MG
     Route: 048
  5. PREDNISONE TAB [Concomitant]
     Indication: MULTIPLE MYELOMA
     Route: 065
  6. MARCUMAR [Concomitant]
     Indication: THROMBOSIS PROPHYLAXIS
     Route: 065
  7. ACETYLSALICYLIC ACID SRT [Concomitant]
     Indication: THROMBOSIS PROPHYLAXIS
     Route: 065
  8. HEPARIN [Concomitant]
     Indication: THROMBOSIS PROPHYLAXIS
     Route: 058

REACTIONS (23)
  - SKIN DISORDER [None]
  - DIABETES MELLITUS [None]
  - BONE MARROW DISORDER [None]
  - HYPERSENSITIVITY [None]
  - EYE DISORDER [None]
  - GASTROINTESTINAL DISORDER [None]
  - AMYLOIDOSIS [None]
  - HYPERHIDROSIS [None]
  - ARRHYTHMIA [None]
  - ERECTILE DYSFUNCTION [None]
  - PAIN [None]
  - TOXICITY TO VARIOUS AGENTS [None]
  - DIZZINESS [None]
  - ADVERSE EVENT [None]
  - CARDIAC DISORDER [None]
  - ANGIOPATHY [None]
  - NERVOUS SYSTEM DISORDER [None]
  - DISEASE PROGRESSION [None]
  - VENTRICULAR TACHYCARDIA [None]
  - RESPIRATORY DISORDER [None]
  - POLYNEUROPATHY [None]
  - GENERAL SYMPTOM [None]
  - DRY SKIN [None]
